FAERS Safety Report 14211368 (Version 2)
Quarter: 2019Q2

REPORT INFORMATION
  Report Type: Spontaneous
  Country: FR (occurrence: FR)
  Receive Date: 20171121
  Receipt Date: 20190627
  Transmission Date: 20190711
  Serious: Yes (Congenital Anomaly, Other)
  Sender: FDA-Public Use
  Company Number: PHHY2017FR169386

PATIENT
  Age: 1 Day
  Sex: Female
  Weight: 1.57 kg

DRUGS (3)
  1. KEPPRA [Suspect]
     Active Substance: LEVETIRACETAM
     Indication: FOETAL EXPOSURE DURING PREGNANCY
     Dosage: MOTHER DOSE :1000 MG, BID (2000 MG ,QD)
     Route: 064
  2. TEGRETOL [Suspect]
     Active Substance: CARBAMAZEPINE
     Indication: FOETAL EXPOSURE DURING PREGNANCY
     Dosage: MOTHER DOSE:400 MG (MORNING) + 600 MG (EVENING)
     Route: 064
  3. SPECIAFOLDINE [Concomitant]
     Active Substance: FOLIC ACID
     Indication: FOETAL EXPOSURE DURING PREGNANCY
     Dosage: UNK
     Route: 064

REACTIONS (3)
  - Maternal exposure during pregnancy [Unknown]
  - Growth retardation [Not Recovered/Not Resolved]
  - Cerebellar hypoplasia [Not Recovered/Not Resolved]

NARRATIVE: CASE EVENT DATE: 20170301
